FAERS Safety Report 4901407-6 (Version None)
Quarter: 2006Q1

REPORT INFORMATION
  Report Type: 
  Country: None (occurrence: None)
  Receive Date: 20060201
  Receipt Date: 20060201
  Transmission Date: 20060701
  Serious: No
  Sender: FDA-Public Use
  Company Number: None

PATIENT
  Age: 48 Year
  Sex: Male
  Weight: 95.2554 kg

DRUGS (3)
  1. ADVIL [Suspect]
     Indication: DISCOMFORT
     Dosage: 200 MG 1-3 PER DAY PO
     Route: 048
     Dates: start: 20051129, end: 20060128
  2. ADVIL [Suspect]
     Indication: INFLUENZA LIKE ILLNESS
     Dosage: 200 MG 1-3 PER DAY PO
     Route: 048
     Dates: start: 20051129, end: 20060128
  3. IBUPROFEN [Suspect]
     Indication: DISCOMFORT
     Dosage: 200 MG 1-3 PER DAY PO
     Route: 048

REACTIONS (3)
  - MEMORY IMPAIRMENT [None]
  - MENTAL IMPAIRMENT [None]
  - SPEECH DISORDER [None]
